FAERS Safety Report 8613129-9 (Version None)
Quarter: 2012Q3

REPORT INFORMATION
  Report Type: 
  Country: None (occurrence: None)
  Receive Date: 20120822
  Receipt Date: 20120730
  Transmission Date: 20120928
  Serious: Yes (Death, Hospitalization, Other)
  Sender: FDA-Public Use
  Company Number: JP-009507513-2010SP066383

PATIENT

DRUGS (7)
  1. SULFAMETHOXAZOLE AND TRIMETHOPRIM [Concomitant]
     Indication: PROPHYLAXIS
     Dosage: DAILY DOSAGE UNKNOWN
     Route: 048
  2. LANSOPRAZOLE [Suspect]
     Indication: PROPHYLAXIS AGAINST GASTROINTESTINAL ULCER
     Dosage: 15 MG, ONCE
     Route: 048
     Dates: start: 20101021, end: 20101203
  3. ZONISAMIDE [Suspect]
     Indication: CONVULSION PROPHYLAXIS
     Dosage: 100 MG, BID
     Route: 048
     Dates: start: 20101021, end: 20101203
  4. TEMODAL [Suspect]
     Indication: GLIOBLASTOMA MULTIFORME
     Dosage: 75 MG/M2, QD
     Route: 048
     Dates: start: 20101028, end: 20101211
  5. SULFAMETHOXAZOLE AND TRIMETHOPRIM [Concomitant]
     Indication: ANTIFUNGAL PROPHYLAXIS
  6. PREDNISOLONE [Suspect]
     Indication: BRAIN OEDEMA
     Dosage: 10 MG, BID
     Route: 048
     Dates: start: 20101021, end: 20101203
  7. TEMODAL [Suspect]

REACTIONS (4)
  - ORAL CANDIDIASIS [None]
  - LYMPHOPENIA [None]
  - MENINGITIS CRYPTOCOCCAL [None]
  - PLATELET COUNT DECREASED [None]
